FAERS Safety Report 5938298-0 (Version None)
Quarter: 2008Q4

REPORT INFORMATION
  Report Type: 
  Country: None (occurrence: None)
  Receive Date: 20081031
  Receipt Date: 20081024
  Transmission Date: 20090506
  Serious: Yes (Hospitalization, Other)
  Sender: FDA-Public Use
  Company Number: US-ABBOTT-08P-163-0483890-00

PATIENT
  Sex: Male

DRUGS (3)
  1. HUMIRA [Suspect]
     Indication: CROHN'S DISEASE
     Route: 058
     Dates: end: 20080701
  2. HUMIRA [Suspect]
     Route: 058
     Dates: start: 20080701
  3. HUMIRA [Suspect]
     Route: 058
     Dates: start: 20081001

REACTIONS (8)
  - ASTHENIA [None]
  - CATHETER SITE INFECTION [None]
  - DRUG INEFFECTIVE [None]
  - GASTROINTESTINAL DISORDER [None]
  - ILEAL GANGRENE [None]
  - PYREXIA [None]
  - SMALL INTESTINAL PERFORATION [None]
  - WEIGHT DECREASED [None]
